FAERS Safety Report 20126299 (Version 1)
Quarter: 2021Q4

REPORT INFORMATION
  Report Type: Spontaneous
  Country: CA (occurrence: CA)
  Receive Date: 20211129
  Receipt Date: 20211129
  Transmission Date: 20220303
  Serious: No
  Sender: FDA-Public Use
  Company Number: CA-ELI_LILLY_AND_COMPANY-CA202111007754

PATIENT
  Age: 26 Year
  Sex: Male

DRUGS (1)
  1. TADALAFIL [Suspect]
     Active Substance: TADALAFIL
     Indication: Product used for unknown indication
     Dosage: 10 MG, UNKNOWN
     Route: 065

REACTIONS (4)
  - Ocular hyperaemia [Unknown]
  - Dizziness [Unknown]
  - Headache [Unknown]
  - Nasal congestion [Unknown]
